FAERS Safety Report 20195276 (Version 1)
Quarter: 2021Q4

REPORT INFORMATION
  Report Type: Spontaneous
  Country: US (occurrence: US)
  Receive Date: 20211216
  Receipt Date: 20211216
  Transmission Date: 20220303
  Serious: No
  Sender: FDA-Public Use
  Company Number: US-ENDO PHARMACEUTICALS INC-2021-002098

PATIENT
  Sex: Male
  Weight: 79.365 kg

DRUGS (15)
  1. TESTOSTERONE [Suspect]
     Active Substance: TESTOSTERONE
     Indication: Blood testosterone decreased
     Dosage: UNK UNKNOWN, UNKNOWN
     Route: 065
     Dates: start: 2010
  2. TESTOSTERONE [Suspect]
     Active Substance: TESTOSTERONE
     Dosage: UNK UNKNOWN, WEEKLY
     Route: 065
     Dates: end: 2015
  3. TESTOSTERONE [Suspect]
     Active Substance: TESTOSTERONE
     Dosage: UNK UNKNOWN, WEEKLY
     Route: 065
     Dates: start: 2018, end: 2018
  4. TESTOSTERONE [Suspect]
     Active Substance: TESTOSTERONE
     Dosage: UNK UNKNOWN, WEEKLY
     Route: 065
     Dates: start: 2020
  5. HYDROCHLOROTHIAZIDE\LOSARTAN [Concomitant]
     Active Substance: HYDROCHLOROTHIAZIDE\LOSARTAN
     Indication: Product used for unknown indication
     Dosage: UNK
  6. AMLODIPINE [Concomitant]
     Active Substance: AMLODIPINE BESYLATE
     Indication: Product used for unknown indication
     Dosage: UNK UNK, DAILY
  7. BENAZEPRIL [Concomitant]
     Active Substance: BENAZEPRIL HYDROCHLORIDE
     Indication: Product used for unknown indication
     Dosage: 10 MG, DAILY AT BEDTIME
  8. SOLFENACIN [Concomitant]
     Indication: Product used for unknown indication
     Dosage: UNK UNK, DAILY
  9. ROSUVASTATIN [Concomitant]
     Active Substance: ROSUVASTATIN
     Indication: Product used for unknown indication
  10. TRESIBA [Concomitant]
     Active Substance: INSULIN DEGLUDEC
     Indication: Product used for unknown indication
  11. HUMALOG [Concomitant]
     Active Substance: INSULIN LISPRO
     Indication: Product used for unknown indication
  12. VITAMIN B12                        /00056201/ [Concomitant]
     Indication: Product used for unknown indication
  13. MULTIVITAMIN                       /00097801/ [Concomitant]
     Indication: Product used for unknown indication
  14. VITAMIN D3 [Concomitant]
     Active Substance: CHOLECALCIFEROL
     Indication: Product used for unknown indication
  15. VITAMIN C                          /00008001/ [Concomitant]
     Indication: Product used for unknown indication

REACTIONS (5)
  - Glycosylated haemoglobin increased [Unknown]
  - Paraesthesia [Not Recovered/Not Resolved]
  - Expired product administered [Unknown]
  - Flushing [Unknown]
  - Blood pressure increased [Unknown]

NARRATIVE: CASE EVENT DATE: 20100101
